FAERS Safety Report 5782993-3 (Version None)
Quarter: 2008Q2

REPORT INFORMATION
  Report Type: 
  Country: None (occurrence: None)
  Receive Date: 20080619
  Receipt Date: 20080619
  Transmission Date: 20081010
  Serious: Yes (Other)
  Sender: FDA-Public Use
  Company Number: None

PATIENT
  Sex: Male
  Weight: 63.9572 kg

DRUGS (3)
  1. RITONAVIR 100 MG BID [Suspect]
     Dosage: 100 BID PO 4-5 MONTHS
     Route: 048
  2. DARUNAVIR (600 MG TABLET/CAPSULE [Suspect]
     Dosage: 600 BID PO  4-5 MONTHS
     Route: 048
  3. TENOFOVIR/EMTRICITABINE [Concomitant]

REACTIONS (6)
  - DIARRHOEA [None]
  - FOLLICULITIS [None]
  - NAUSEA [None]
  - SKIN LESION [None]
  - STAPHYLOCOCCAL INFECTION [None]
  - VOMITING [None]
